FAERS Safety Report 5714924-6 (Version None)
Quarter: 2008Q2

REPORT INFORMATION
  Report Type: 
  Country: None (occurrence: None)
  Receive Date: 20080423
  Receipt Date: 20080410
  Transmission Date: 20081010
  Serious: Yes (Hospitalization)
  Sender: FDA-Public Use
  Company Number: FR-AVENTIS-200811363FR

PATIENT
  Age: 85 Year
  Sex: Male

DRUGS (10)
  1. HYDROCORTISONE [Suspect]
     Route: 048
  2. STILNOX                            /00914901/ [Suspect]
     Indication: INSOMNIA
     Route: 048
     Dates: end: 20071216
  3. PREVISCAN                          /00789001/ [Suspect]
     Indication: THROMBOSIS PROPHYLAXIS
     Route: 048
     Dates: start: 20061215, end: 20071215
  4. IXEL                               /01054401/ [Suspect]
     Indication: DEPRESSION
     Route: 048
     Dates: end: 20070116
  5. FORLAX [Suspect]
     Indication: CONSTIPATION
     Route: 048
     Dates: end: 20071216
  6. AERIUS                             /01398501/ [Suspect]
     Indication: HYPERSENSITIVITY
     Route: 048
     Dates: start: 20071213, end: 20071216
  7. LEVOTHYROXINE SODIUM [Suspect]
     Route: 048
  8. NEXIUM [Concomitant]
     Indication: GASTRIC ULCER PERFORATION
  9. ALPRAZOLAM [Concomitant]
     Indication: DEPRESSION
  10. EFFERALGAN CODEINE [Concomitant]

REACTIONS (3)
  - ANAEMIA [None]
  - HAEMATOMA [None]
  - MUSCLE HAEMORRHAGE [None]
